FAERS Safety Report 5075424-2 (Version None)
Quarter: 2006Q3

REPORT INFORMATION
  Report Type: 
  Country: None (occurrence: None)
  Receive Date: 20060809
  Receipt Date: 20060729
  Transmission Date: 20061208
  Serious: Yes (Other)
  Sender: FDA-Public Use
  Company Number: CHNY2006BR02273

PATIENT
  Age: 23 Year
  Sex: Male
  Weight: 53 kg

DRUGS (2)
  1. OTRIVINA (NCH) [Suspect]
     Indication: NASAL CONGESTION
     Dosage: 2 DRP, BID
     Dates: start: 20060726, end: 20060728
  2. DICLOFENAC SODIUM [Suspect]
     Indication: PHARYNGOLARYNGEAL PAIN
     Dosage: 50 MG, Q8H
     Route: 048
     Dates: end: 20060728

REACTIONS (10)
  - ANOREXIA [None]
  - CONDITION AGGRAVATED [None]
  - COUGH [None]
  - DRY MOUTH [None]
  - DRY THROAT [None]
  - EPISTAXIS [None]
  - HEADACHE [None]
  - MOUTH HAEMORRHAGE [None]
  - NASAL CONGESTION [None]
  - PALPITATIONS [None]
